FAERS Safety Report 16013029 (Version 1)
Quarter: 2019Q1

REPORT INFORMATION
  Report Type: Spontaneous
  Country: US (occurrence: US)
  Receive Date: 20190227
  Receipt Date: 20190227
  Transmission Date: 20190418
  Serious: Yes (Life-Threatening, Hospitalization, Disabling)
  Sender: FDA-Public Use
  Company Number: None

PATIENT
  Age: 79 Year
  Sex: Female
  Weight: 54.9 kg

DRUGS (7)
  1. MONTELUKAST 10 MG PO HS [Concomitant]
  2. ASPIRIN 81 MG [Concomitant]
     Active Substance: ASPIRIN
  3. AIMOVIG [Suspect]
     Active Substance: ERENUMAB-AOOE
     Indication: MIGRAINE PROPHYLAXIS
     Dosage: ?          OTHER FREQUENCY:MONTHLY;?
  4. FIORICET 50-325-40 MG [Concomitant]
  5. METHOCARBAMOL 500 MG QID [Concomitant]
  6. PRAVASTATIN 40 MG HS [Concomitant]
  7. SUMATRIPAN 50 MG (MAY REPEAT IN 2 HRS; MAX 200 MG/DAY) [Concomitant]

REACTIONS (5)
  - Subdural haemorrhage [None]
  - Fall [None]
  - Cerebral amyloid angiopathy [None]
  - Head injury [None]
  - Cerebral haemorrhage [None]
